FAERS Safety Report 8761266 (Version 3)
Quarter: 2013Q2

REPORT INFORMATION
  Report Type: Spontaneous
  Country: US (occurrence: US)
  Receive Date: 20120830
  Receipt Date: 20130522
  Transmission Date: 20140414
  Serious: No
  Sender: FDA-Public Use
  Company Number: US-B.I. PHARMACEUTICALS,INC./RIDGEFIELD-2012-BP-20716BP

PATIENT
  Age: 82 Year
  Sex: Female
  Weight: 74 kg

DRUGS (8)
  1. MICARDIS [Suspect]
     Indication: HYPERTENSION
     Dosage: 40 MG
     Route: 048
     Dates: start: 2009, end: 201212
  2. MICARDIS [Suspect]
     Dosage: 80 MG
     Route: 048
     Dates: start: 201212, end: 201212
  3. MICARDIS [Suspect]
     Dosage: 40 MG
     Route: 048
     Dates: start: 201301
  4. MICARDIS [Suspect]
     Dosage: 80 MG
     Route: 048
     Dates: start: 2009, end: 201301
  5. ADVIL [Concomitant]
     Indication: ARTHRALGIA
     Route: 048
  6. HTCZ [Concomitant]
     Indication: BLOOD PRESSURE ABNORMAL
     Dosage: 12.5 MG
     Route: 048
  7. SYNTHROID [Concomitant]
     Indication: HYPOTHYROIDISM
     Dosage: 75 MCG
  8. ATIVAN [Concomitant]
     Indication: ANXIETY
     Route: 048

REACTIONS (12)
  - Dizziness [Not Recovered/Not Resolved]
  - Weight decreased [Unknown]
  - Blood pressure increased [Not Recovered/Not Resolved]
  - Middle insomnia [Not Recovered/Not Resolved]
  - Hypotension [Recovered/Resolved]
  - Product quality issue [Recovered/Resolved]
  - Nausea [Not Recovered/Not Resolved]
  - Anxiety [Recovered/Resolved]
  - Blood pressure increased [Not Recovered/Not Resolved]
  - Blood sodium decreased [Recovered/Resolved]
  - Pollakiuria [Not Recovered/Not Resolved]
  - Dental caries [Recovered/Resolved]
